FAERS Safety Report 22528757 (Version 1)
Quarter: 2023Q2

REPORT INFORMATION
  Report Type: Spontaneous
  Country: US (occurrence: US)
  Receive Date: 20230607
  Receipt Date: 20230607
  Transmission Date: 20230722
  Serious: Yes (Hospitalization, Other)
  Sender: FDA-Public Use
  Company Number: US-CADILA HEALTHCARE LIMITED-US-ZYDUS-093753

PATIENT

DRUGS (3)
  1. DIVALPROEX SODIUM [Interacting]
     Active Substance: DIVALPROEX SODIUM
     Indication: Epilepsy
     Dosage: 1500 MILLIGRAM, BID
     Route: 065
  2. MOUNJARO [Interacting]
     Active Substance: TIRZEPATIDE
     Indication: Weight decreased
     Dosage: 2.5 MILLIGRAM, ONCE WEEKLY
     Route: 065
  3. LEVETIRACETAM [Concomitant]
     Active Substance: LEVETIRACETAM
     Dosage: 1500 MILLIGRAM, BID
     Route: 065
     Dates: start: 2018

REACTIONS (10)
  - Drug interaction [Unknown]
  - Drug level increased [Unknown]
  - Decreased appetite [Unknown]
  - Fatigue [Unknown]
  - Ataxia [Unknown]
  - Encephalopathy [Unknown]
  - Malaise [Unknown]
  - Hypoacusis [Unknown]
  - Thrombocytopenia [Unknown]
  - Petechiae [Unknown]
